FAERS Safety Report 5573018-3 (Version None)
Quarter: 2007Q4

REPORT INFORMATION
  Report Type: 
  Country: None (occurrence: None)
  Receive Date: 20071224
  Receipt Date: 20071214
  Transmission Date: 20080405
  Serious: Yes (Death, Hospitalization)
  Sender: FDA-Public Use
  Company Number: JP-JNJFOC-20071100839

PATIENT
  Sex: Female

DRUGS (21)
  1. CRAVIT [Suspect]
     Indication: URINARY TRACT INFECTION
     Route: 048
  2. CRAVIT [Suspect]
     Indication: CYSTITIS
     Route: 048
  3. ALFAROL [Concomitant]
     Route: 048
  4. PANTOSIN [Concomitant]
     Route: 048
  5. FAMOTIDINE [Concomitant]
     Route: 048
  6. CEREKINON [Concomitant]
     Route: 048
  7. PURUZENIDO [Concomitant]
     Route: 048
  8. NITRODERM [Concomitant]
     Route: 061
  9. BIOFERMIN R [Concomitant]
     Route: 048
  10. ASPIRIN [Concomitant]
     Route: 048
  11. ENALAPRIL MALEATE [Concomitant]
     Route: 048
  12. THYRADIN [Concomitant]
     Route: 048
  13. ACARDI [Concomitant]
     Route: 048
  14. HALFDIGOXIN-KY [Concomitant]
     Route: 048
  15. ARTIST [Concomitant]
     Route: 048
  16. ITOROL [Concomitant]
     Route: 048
  17. ALDACTONE [Concomitant]
     Route: 048
  18. LASIX [Concomitant]
     Route: 048
  19. SIGMART [Concomitant]
     Route: 048
  20. BASEN OD [Concomitant]
     Route: 048
  21. ZYLORIC [Concomitant]
     Route: 048

REACTIONS (3)
  - ARRHYTHMIA [None]
  - RENAL FAILURE ACUTE [None]
  - TOXIC EPIDERMAL NECROLYSIS [None]
